FAERS Safety Report 8357042-3 (Version None)
Quarter: 2012Q1

REPORT INFORMATION
  Report Type: 
  Country: None (occurrence: None)
  Receive Date: 20120315
  Receipt Date: 20110610
  Transmission Date: 20120608
  Serious: Yes (Other)
  Sender: FDA-Public Use
  Company Number: PHHY2011US51650

PATIENT
  Age: 65 Year
  Sex: Male

DRUGS (4)
  1. NEXIUM [Concomitant]
  2. GILENYA [Suspect]
     Indication: MULTIPLE SCLEROSIS
     Dosage: 0.5 MG, DAILY, ORAL
     Route: 048
     Dates: start: 20101216, end: 20110515
  3. NORVASC [Concomitant]
  4. HYDROCHLOROTHIAZIDE W/LOSARTAN (HYDROCHLOROTHIAZIDE, LOSARTAN) [Concomitant]

REACTIONS (2)
  - HERPES ZOSTER [None]
  - IMMUNODEFICIENCY [None]
